FAERS Safety Report 11418965 (Version 4)
Quarter: 2015Q4

REPORT INFORMATION
  Report Type: Report from Study
  Country: KR (occurrence: KR)
  Receive Date: 20150826
  Receipt Date: 20151030
  Transmission Date: 20160304
  Serious: Yes (Hospitalization, Other)
  Sender: FDA-Public Use
  Company Number: KR-ALEXION PHARMACEUTICALS INC.-A201503202

PATIENT
  Age: 42 Year
  Sex: Female

DRUGS (7)
  1. URSA [Concomitant]
     Indication: LIVER DISORDER
     Dosage: 200 MG, UNK
     Route: 048
     Dates: start: 20120801
  2. ASPIRIN. [Concomitant]
     Active Substance: ASPIRIN
     Indication: THROMBOSIS
     Dosage: 100 MG, UNK
     Route: 048
     Dates: start: 20141211
  3. SOLIRIS [Suspect]
     Active Substance: ECULIZUMAB
     Indication: PAROXYSMAL NOCTURNAL HAEMOGLOBINURIA
     Dosage: 600 MG, QW
     Route: 042
     Dates: start: 20141113, end: 20141204
  4. CALCORT [Concomitant]
     Active Substance: DEFLAZACORT
     Indication: PAROXYSMAL NOCTURNAL HAEMOGLOBINURIA
     Dosage: 18 MG, UNK
     Route: 048
     Dates: start: 20100812
  5. FOLSAN [Concomitant]
     Active Substance: FOLIC ACID
     Indication: ANAEMIA
     Dosage: 4 MG, UNK
     Route: 048
     Dates: start: 20090527
  6. SOLIRIS [Suspect]
     Active Substance: ECULIZUMAB
     Dosage: 900 MG, Q2W
     Route: 042
     Dates: start: 20141211
  7. MUCOSTA [Concomitant]
     Active Substance: REBAMIPIDE
     Indication: GASTRITIS PROPHYLAXIS
     Dosage: 200 MG, UNK
     Route: 048
     Dates: start: 20130114

REACTIONS (9)
  - Productive cough [Recovered/Resolved]
  - Bronchiectasis [Recovered/Resolved]
  - Blood bilirubin increased [Unknown]
  - Bacterial infection [Recovered/Resolved]
  - Blood bilirubin decreased [Unknown]
  - Jaundice [Recovered/Resolved]
  - Haemoglobin decreased [Recovered/Resolved]
  - Bronchiolitis [Recovered/Resolved]
  - Blood lactate dehydrogenase increased [Recovered/Resolved]

NARRATIVE: CASE EVENT DATE: 20150804
